FAERS Safety Report 18522343 (Version 2)
Quarter: 2020Q4

REPORT INFORMATION
  Report Type: Report from Study
  Country: BE (occurrence: BE)
  Receive Date: 20201119
  Receipt Date: 20201125
  Transmission Date: 20210114
  Serious: Yes (Other)
  Sender: FDA-Public Use
  Company Number: BE-IPSEN BIOPHARMACEUTICALS, INC.-2020-22537

PATIENT
  Age: 38 Year
  Sex: Male
  Weight: 78 kg

DRUGS (8)
  1. NORPROLAC [Concomitant]
     Active Substance: QUINAGOLIDE HYDROCHLORIDE
     Dosage: 1X PER DAY
  2. INSULIN FIASP [Concomitant]
     Dosage: DEPENDING ON THE MEAL
  3. INSULIN TOUJEJO [Concomitant]
     Dosage: 18 UNITS PER DAY
  4. SOMATULINE AUTOGEL [Suspect]
     Active Substance: LANREOTIDE ACETATE
     Indication: NEUROENDOCRINE TUMOUR
     Route: 058
     Dates: start: 20201007
  5. PANTOMED [Concomitant]
  6. MAGNESIUM [Concomitant]
     Active Substance: MAGNESIUM
     Indication: SUPPLEMENTATION THERAPY
     Dosage: 1X PER DAY
  7. CREON [Concomitant]
     Active Substance: PANCRELIPASE AMYLASE\PANCRELIPASE LIPASE\PANCRELIPASE PROTEASE
     Dosage: 2 TO 4 PER MEAL
  8. TARDYFERON [Concomitant]
     Active Substance: FERROUS SULFATE
     Dosage: 2X PER DAY

REACTIONS (2)
  - Flatulence [Recovering/Resolving]
  - Condition aggravated [Recovering/Resolving]

NARRATIVE: CASE EVENT DATE: 20201007
